FAERS Safety Report 8217542-3 (Version None)
Quarter: 2012Q1

REPORT INFORMATION
  Report Type: 
  Country: None (occurrence: None)
  Receive Date: 20120314
  Receipt Date: 20120305
  Transmission Date: 20120608
  Serious: Yes (Other)
  Sender: FDA-Public Use
  Company Number: AUR-APL-2012-01364

PATIENT
  Age: 67 Year
  Sex: Male

DRUGS (4)
  1. ESCITALOPRAM OXALATE [Suspect]
     Indication: DEPRESSION
     Dosage: (10 MG, 1 D), UNKNOWN
  2. LOSARTAN POTASSIUM [Concomitant]
  3. MIRTAZAPINE [Suspect]
     Indication: DEPRESSION
     Dosage: (7.5 MG, 1 D), UNKNOWN
  4. AMLODIPINE [Concomitant]

REACTIONS (7)
  - FATIGUE [None]
  - HYPOMANIA [None]
  - INSOMNIA [None]
  - DEPRESSED MOOD [None]
  - DECREASED INTEREST [None]
  - AGGRESSION [None]
  - DRUG INTERACTION [None]
